FAERS Safety Report 21354263 (Version 1)
Quarter: 2022Q3

REPORT INFORMATION
  Report Type: Spontaneous
  Country: CA (occurrence: CA)
  Receive Date: 20220920
  Receipt Date: 20220920
  Transmission Date: 20221027
  Serious: Yes (Other)
  Sender: FDA-Public Use
  Company Number: CA-drreddys-SPO/CAN/22/0154644

PATIENT
  Age: 68 Year
  Sex: Male

DRUGS (1)
  1. LENALIDOMIDE [Suspect]
     Active Substance: LENALIDOMIDE
     Indication: Blastic plasmacytoid dendritic cell neoplasia
     Route: 048

REACTIONS (2)
  - Cerebrovascular accident [Unknown]
  - Product use issue [Unknown]
